FAERS Safety Report 5454401-3 (Version None)
Quarter: 2007Q3

REPORT INFORMATION
  Report Type: 
  Country: None (occurrence: None)
  Receive Date: 20070917
  Receipt Date: 20070913
  Transmission Date: 20080115
  Serious: Yes (Other)
  Sender: FDA-Public Use
  Company Number: SEWYE311414SEP07

PATIENT
  Age: 20 Year
  Sex: Female

DRUGS (4)
  1. EFFEXOR [Suspect]
     Indication: DEPRESSION
     Route: 048
     Dates: start: 20070501, end: 20070601
  2. EFFEXOR [Suspect]
     Indication: ANXIETY
     Route: 048
     Dates: start: 20070701, end: 20070701
  3. EFFEXOR [Suspect]
     Indication: PANIC DISORDER
  4. LORAZEPAM [Concomitant]
     Dosage: 1-2 TABLETS IN THE DAY AND 2-3 TABLETS IN THE EVENING
     Route: 048

REACTIONS (1)
  - EPILEPSY [None]
